FAERS Safety Report 12101003 (Version 1)
Quarter: 2016Q1

REPORT INFORMATION
  Report Type: Spontaneous
  Country: BR (occurrence: BR)
  Receive Date: 20160222
  Receipt Date: 20160222
  Transmission Date: 20160526
  Serious: Yes (Other)
  Sender: FDA-Public Use
  Company Number: BR-SA-2016SA033213

PATIENT
  Age: 70 Year
  Sex: Female
  Weight: 58 kg

DRUGS (1)
  1. STILNOX [Suspect]
     Active Substance: ZOLPIDEM TARTRATE
     Indication: INSOMNIA
     Dosage: STARTED AROUND TWO YEARS AGO?STOP DATE BEGINNING OF LAST MONTH
     Route: 048

REACTIONS (3)
  - Cataract [Unknown]
  - Blindness [Unknown]
  - Visual impairment [Unknown]
